FAERS Safety Report 8961428 (Version 1)
Quarter: 2012Q4

REPORT INFORMATION
  Report Type: Report from Study
  Country: CA (occurrence: CA)
  Receive Date: 20121213
  Receipt Date: 20121213
  Transmission Date: 20130627
  Serious: Yes (Other)
  Sender: FDA-Public Use
  Company Number: CA-JNJFOC-20121202269

PATIENT
  Age: 50 Year
  Sex: Female

DRUGS (12)
  1. REMICADE [Suspect]
     Indication: RHEUMATOID ARTHRITIS
     Route: 042
     Dates: start: 20090709
  2. REMICADE [Suspect]
     Indication: RHEUMATOID ARTHRITIS
     Route: 042
     Dates: start: 20121023
  3. ARAVA [Concomitant]
     Route: 065
  4. INDAPAMIDE [Concomitant]
     Route: 065
  5. VENLAFAXINE [Concomitant]
     Route: 065
  6. LIPITOR [Concomitant]
     Route: 065
  7. CALCIUM [Concomitant]
     Route: 065
  8. VITAMIN D [Concomitant]
     Route: 065
  9. MAGNESIUM [Concomitant]
     Route: 065
  10. OMEGA 3-6-9 [Concomitant]
     Route: 065
  11. VITAMIN C [Concomitant]
     Route: 065
  12. AMITRIPTYLINE [Concomitant]
     Route: 065

REACTIONS (2)
  - Mammoplasty [Unknown]
  - Suture related complication [Unknown]
